FAERS Safety Report 7288499-7 (Version None)
Quarter: 2011Q1

REPORT INFORMATION
  Report Type: 
  Country: None (occurrence: None)
  Receive Date: 20110207
  Receipt Date: 20110207
  Transmission Date: 20110831
  Serious: Yes (Life-Threatening)
  Sender: FDA-Public Use
  Company Number: None

PATIENT
  Age: 26 Year
  Sex: Female
  Weight: 82.1011 kg

DRUGS (6)
  1. ASPARAGINASE [Suspect]
     Indication: ACUTE LYMPHOCYTIC LEUKAEMIA
     Dosage: 4575 IU ONCE IV
     Route: 042
     Dates: start: 20101213, end: 20101213
  2. ARA-C IT [Concomitant]
  3. DAUNORUBICIN [Concomitant]
  4. PREDNISONE [Concomitant]
  5. ZOFRAN [Concomitant]
  6. VINCRISTINE [Concomitant]

REACTIONS (5)
  - CONVULSION [None]
  - CONFUSIONAL STATE [None]
  - HEPATIC STEATOSIS [None]
  - POSTICTAL STATE [None]
  - HYPOPROTEINAEMIA [None]
